FAERS Safety Report 5463540-2 (Version None)
Quarter: 2007Q3

REPORT INFORMATION
  Report Type: 
  Country: None (occurrence: None)
  Receive Date: 20070920
  Receipt Date: 20070914
  Transmission Date: 20080115
  Serious: Yes (Hospitalization)
  Sender: FDA-Public Use
  Company Number: JP-SHR-JP-2007-014239

PATIENT
  Age: 73 Year
  Sex: Female
  Weight: 50 kg

DRUGS (7)
  1. FLUDARA [Suspect]
     Indication: CHRONIC LYMPHOCYTIC LEUKAEMIA
     Dosage: 35 MG, CYCLE X 5D
     Route: 042
     Dates: start: 20050303, end: 20050307
  2. ZANTAC [Concomitant]
     Dosage: 150 MG, 1X/DAY
     Route: 048
     Dates: start: 20050223, end: 20050610
  3. AMLODIPINE [Concomitant]
     Indication: HYPERTENSION
     Dosage: 5 MG, 1X/DAY
     Route: 048
     Dates: start: 20050223, end: 20050610
  4. NEORAL [Concomitant]
     Indication: APLASTIC ANAEMIA
     Dosage: 50 MG, 3X/DAY
     Route: 048
     Dates: start: 20050223
  5. ITRIZOLE [Concomitant]
     Indication: ANTIFUNGAL PROPHYLAXIS
     Dosage: 50 MG, 2X/DAY
     Route: 048
     Dates: start: 20050223, end: 20050413
  6. BAKTAR [Concomitant]
     Dosage: 3 TAB(S), 1X/DAY
     Route: 048
     Dates: start: 20050223, end: 20050610
  7. LEVOFLOXACIN [Concomitant]
     Indication: ENTEROCOLITIS
     Dosage: 100 MG, 3X/DAY
     Route: 048
     Dates: start: 20050223

REACTIONS (1)
  - CHRONIC LYMPHOCYTIC LEUKAEMIA TRANSFORMATION [None]
